FAERS Safety Report 9758955 (Version 1)
Quarter: 2013Q4

REPORT INFORMATION
  Report Type: Spontaneous
  Country: US (occurrence: US)
  Receive Date: 20131216
  Receipt Date: 20131216
  Transmission Date: 20140711
  Serious: No
  Sender: FDA-Public Use
  Company Number: US-ENDO PHARMACEUTICALS INC.-BUTA20110003

PATIENT
  Age: 53 Year
  Sex: Female

DRUGS (3)
  1. BUTALBITAL/ACETAMINOPHEN/CAFFEINE TABLETS [Suspect]
     Indication: HEADACHE
     Dosage: 1-2 PO Q6-8HRS PRN
     Route: 048
     Dates: start: 201007
  2. ASACOL [Concomitant]
  3. LUPRON [Concomitant]

REACTIONS (2)
  - Nausea [Unknown]
  - Tremor [Unknown]
